FAERS Safety Report 10331591 (Version 2)
Quarter: 2014Q3

REPORT INFORMATION
  Report Type: Spontaneous
  Country: US (occurrence: US)
  Receive Date: 20140722
  Receipt Date: 20140814
  Transmission Date: 20150326
  Serious: Yes (Death)
  Sender: FDA-Public Use
  Company Number: US-SA-2014SA094063

PATIENT
  Age: 66 Year
  Sex: Female
  Weight: 82 kg

DRUGS (11)
  1. SENSIPAR [Concomitant]
     Active Substance: CINACALCET HYDROCHLORIDE
     Indication: HYPERPARATHYROIDISM SECONDARY
     Dates: start: 20140407
  2. INSULIN ASPART [Concomitant]
     Active Substance: INSULIN ASPART
     Indication: DIABETES MELLITUS
     Dosage: 1-20 U DOSE:100 MICROGRAM(S)/MILLILITRE
  3. LANTUS [Concomitant]
     Active Substance: INSULIN GLARGINE
     Indication: DIABETES MELLITUS
     Dosage: 100 U/ML DOSE:15 UNIT(S)
     Route: 058
  4. VITAMINS [Concomitant]
     Active Substance: VITAMINS
  5. PLAVIX [Concomitant]
     Active Substance: CLOPIDOGREL BISULFATE
     Indication: ANTIPLATELET THERAPY
  6. PRILOSEC [Concomitant]
     Active Substance: OMEPRAZOLE MAGNESIUM
  7. NITROSTAT [Concomitant]
     Active Substance: NITROGLYCERIN
  8. COREG [Concomitant]
     Active Substance: CARVEDILOL
     Indication: HYPERTENSION
  9. RENVELA [Suspect]
     Active Substance: SEVELAMER CARBONATE
     Indication: HYPERPHOSPHATAEMIA
     Dosage: 2 TABLETS
     Route: 048
     Dates: start: 20080909
  10. OXYCODONE [Concomitant]
     Active Substance: OXYCODONE
     Dosage: 1 CAPSULE 6 HR PRN
  11. ASA [Concomitant]
     Active Substance: ASPIRIN

REACTIONS (5)
  - Sepsis [Fatal]
  - Cholecystitis infective [Fatal]
  - Respiratory arrest [Fatal]
  - Abdominal pain [Fatal]
  - Cholecystitis acute [Fatal]

NARRATIVE: CASE EVENT DATE: 20140709
